FAERS Safety Report 7627473-5 (Version None)
Quarter: 2011Q3

REPORT INFORMATION
  Report Type: 
  Country: None (occurrence: None)
  Receive Date: 20110721
  Receipt Date: 20110711
  Transmission Date: 20111222
  Serious: Yes (Hospitalization)
  Sender: FDA-Public Use
  Company Number: US-ELI_LILLY_AND_COMPANY-US201107003242

PATIENT
  Sex: Female

DRUGS (4)
  1. HUMULIN 70/30 [Suspect]
     Indication: DIABETES MELLITUS
     Dosage: 100 U, BID
     Dates: start: 20010101, end: 20110301
  2. HUMULIN N [Suspect]
     Indication: DIABETES MELLITUS
     Dosage: UNK UNK, PRN
     Dates: start: 20110301, end: 20110401
  3. HUMULIN 70/30 [Suspect]
     Dosage: 100 U, BID
     Dates: start: 20110401
  4. METFORMIN HYDROCHLORIDE [Concomitant]
     Dosage: UNK

REACTIONS (4)
  - EYE OPERATION [None]
  - DRUG INEFFECTIVE [None]
  - CARDIAC FAILURE CONGESTIVE [None]
  - DIABETIC RETINOPATHY [None]
